FAERS Safety Report 20101299 (Version 4)
Quarter: 2022Q2

REPORT INFORMATION
  Report Type: Report from Study
  Country: US (occurrence: US)
  Receive Date: 20211123
  Receipt Date: 20220603
  Transmission Date: 20220721
  Serious: No
  Sender: FDA-Public Use
  Company Number: US-NOVARTISTESTPH-NVSC2021US267917

PATIENT
  Age: 49 Year
  Sex: Male

DRUGS (2)
  1. COSENTYX [Suspect]
     Active Substance: SECUKINUMAB
     Indication: Psoriasis
     Dosage: 300 MG, ONCE A WEEK FOR 5 WEEKS
     Route: 058
     Dates: start: 20211117
  2. COSENTYX [Suspect]
     Active Substance: SECUKINUMAB
     Dosage: 300 MG (ONCE EVERY 4 WEEKS)
     Route: 058

REACTIONS (4)
  - Dizziness postural [Recovered/Resolved]
  - Nausea [Recovered/Resolved]
  - Dry skin [Unknown]
  - Adverse reaction [Unknown]

NARRATIVE: CASE EVENT DATE: 20211118
